FAERS Safety Report 21045335 (Version 1)
Quarter: 2022Q3

REPORT INFORMATION
  Report Type: Spontaneous
  Country: None (occurrence: SE)
  Receive Date: 20220706
  Receipt Date: 20220706
  Transmission Date: 20221026
  Serious: Yes (Death, Hospitalization, Other)
  Sender: FDA-Public Use
  Company Number: SE-Oxford Pharmaceuticals, LLC-2130566

PATIENT
  Age: 16 Year
  Sex: Female

DRUGS (2)
  1. SERTRALINE HYDROCHLORIDE [Suspect]
     Active Substance: SERTRALINE HYDROCHLORIDE
     Indication: Anxiety
  2. RISPERIDONE [Suspect]
     Active Substance: RISPERIDONE

REACTIONS (7)
  - Rhabdomyolysis [Fatal]
  - Hyperthermia [Fatal]
  - Tremor [Fatal]
  - Hyperreflexia [Fatal]
  - Hyperhidrosis [Fatal]
  - Dyskinesia [Fatal]
  - Depressed level of consciousness [Fatal]
